FAERS Safety Report 15113868 (Version 1)
Quarter: 2018Q2

REPORT INFORMATION
  Report Type: Spontaneous
  Country: US (occurrence: US)
  Receive Date: 20180612
  Receipt Date: 20180612
  Transmission Date: 20180711
  Serious: Yes (Disabling, Other)
  Sender: FDA-Public Use
  Company Number: None

PATIENT
  Age: 44 Year
  Sex: Female
  Weight: 63 kg

DRUGS (5)
  1. BACLOFEN. [Concomitant]
     Active Substance: BACLOFEN
  2. ENBREL [Concomitant]
     Active Substance: ETANERCEPT
  3. OTEZLA [Suspect]
     Active Substance: APREMILAST
     Indication: PSORIATIC ARTHROPATHY
     Dosage: ?          QUANTITY:1 DF DOSAGE FORM;?
     Route: 048
     Dates: start: 20180601, end: 20180608
  4. OTEZLA [Suspect]
     Active Substance: APREMILAST
     Indication: PSORIASIS
     Dosage: ?          QUANTITY:1 DF DOSAGE FORM;?
     Route: 048
     Dates: start: 20180601, end: 20180608
  5. ZYRTEX [Concomitant]

REACTIONS (6)
  - Arthralgia [None]
  - Pain [None]
  - Myalgia [None]
  - Hyperaesthesia [None]
  - Pain in extremity [None]
  - Feeling abnormal [None]

NARRATIVE: CASE EVENT DATE: 20180608
